FAERS Safety Report 9735661 (Version 2)
Quarter: 2013Q4

REPORT INFORMATION
  Report Type: Report from Study
  Country: JP (occurrence: JP)
  Receive Date: 20131206
  Receipt Date: 20131206
  Transmission Date: 20140711
  Serious: Yes (Death, Other)
  Sender: FDA-Public Use
  Company Number: PHHY2013JP124025

PATIENT
  Age: 29 Year
  Sex: Female

DRUGS (27)
  1. LEPONEX / CLOZARIL [Suspect]
     Indication: SCHIZOPHRENIA, UNDIFFERENTIATED TYPE
     Dosage: 12.5 MG
     Route: 048
     Dates: start: 20130618
  2. LEPONEX / CLOZARIL [Suspect]
     Dosage: 25 MG
     Route: 048
     Dates: start: 20130619
  3. LEPONEX / CLOZARIL [Suspect]
     Dosage: 50 MG
     Route: 048
     Dates: start: 20130622
  4. LEPONEX / CLOZARIL [Suspect]
     Dosage: 75 MG
     Route: 048
     Dates: start: 20130625
  5. LEPONEX / CLOZARIL [Suspect]
     Dosage: 100 MG
     Route: 048
     Dates: start: 20130628
  6. LEPONEX / CLOZARIL [Suspect]
     Dosage: 125 MG
     Route: 048
     Dates: start: 20130701
  7. LEPONEX / CLOZARIL [Suspect]
     Dosage: 150 MG
     Route: 048
     Dates: start: 20130704
  8. LEPONEX / CLOZARIL [Suspect]
     Dosage: 175 MG
     Route: 048
     Dates: start: 20130707
  9. LEPONEX / CLOZARIL [Suspect]
     Dosage: 200 MG
     Route: 048
     Dates: start: 20130710
  10. LEPONEX / CLOZARIL [Suspect]
     Dosage: 225 MG
     Route: 048
     Dates: start: 20130713
  11. LEPONEX / CLOZARIL [Suspect]
     Dosage: 250 MG
     Route: 048
     Dates: start: 20130717
  12. LEPONEX / CLOZARIL [Suspect]
     Dosage: 275 MG
     Route: 048
     Dates: start: 20130720
  13. LEPONEX / CLOZARIL [Suspect]
     Dosage: 300 MG
     Route: 048
     Dates: start: 20130723
  14. LEPONEX / CLOZARIL [Suspect]
     Dosage: 325 MG
     Route: 048
     Dates: start: 20130725
  15. LEPONEX / CLOZARIL [Suspect]
     Dosage: 350 MG
     Route: 048
     Dates: start: 20130728
  16. LEPONEX / CLOZARIL [Suspect]
     Dosage: 400 MG
     Route: 048
     Dates: start: 20130803
  17. LEPONEX / CLOZARIL [Suspect]
     Dosage: 425 MG
     Route: 048
     Dates: start: 20130806
  18. LEPONEX / CLOZARIL [Suspect]
     Dosage: 450 MG
     Route: 048
     Dates: start: 20130809
  19. LEPONEX / CLOZARIL [Suspect]
     Dosage: 475 MG
     Route: 048
     Dates: start: 20130812
  20. LEPONEX / CLOZARIL [Suspect]
     Dosage: 500 MG
     Route: 048
     Dates: start: 20130815
  21. LEPONEX / CLOZARIL [Suspect]
     Dosage: 525 MG
     Route: 048
     Dates: start: 20130826
  22. LEPONEX / CLOZARIL [Suspect]
     Dosage: 550 MG
     Route: 048
     Dates: start: 20130910
  23. LEPONEX / CLOZARIL [Suspect]
     Dosage: 575 MG
     Route: 048
     Dates: start: 20130917
  24. LEPONEX / CLOZARIL [Suspect]
     Dosage: 600 MG
     Route: 048
     Dates: start: 20131001
  25. TEGRETOL [Concomitant]
     Indication: SCHIZOPHRENIA, UNDIFFERENTIATED TYPE
     Dosage: 700 MG
     Route: 048
  26. LIMAS [Concomitant]
     Indication: SCHIZOPHRENIA, UNDIFFERENTIATED TYPE
     Dosage: 400 MG
     Route: 048
  27. AKINETON [Concomitant]
     Indication: SCHIZOPHRENIA, UNDIFFERENTIATED TYPE
     Dosage: 02 MG
     Route: 048
     Dates: start: 20130712, end: 20130712

REACTIONS (4)
  - Completed suicide [Fatal]
  - Hypertension [Not Recovered/Not Resolved]
  - Lymphocyte count decreased [Recovered/Resolved]
  - Neutrophil count increased [Recovered/Resolved]
